FAERS Safety Report 6747661-X (Version None)
Quarter: 2010Q2

REPORT INFORMATION
  Report Type: 
  Country: None (occurrence: None)
  Receive Date: 20100528
  Receipt Date: 20100526
  Transmission Date: 20101027
  Serious: Yes (Death, Hospitalization, Other)
  Sender: FDA-Public Use
  Company Number: PHHO2010US02088

PATIENT
  Sex: Male

DRUGS (6)
  1. GLEEVEC [Suspect]
     Indication: GASTROINTESTINAL STROMAL TUMOUR
     Dosage: 400 MG, QD
     Route: 048
     Dates: start: 20091201
  2. SUNITINIB MALATE [Suspect]
     Indication: GASTROINTESTINAL STROMAL TUMOUR
     Dosage: 25 MG, QD
     Route: 048
     Dates: start: 20091214
  3. ENALAPRIL [Concomitant]
     Indication: HYPERTENSION
  4. IBUPROFENE [Concomitant]
     Indication: PAIN
  5. ADOLONTA [Concomitant]
     Indication: PAIN
  6. OMEPRAZOLE [Concomitant]
     Indication: PROPHYLAXIS

REACTIONS (14)
  - ANAEMIA [None]
  - ASPIRATION BRONCHIAL [None]
  - BRONCHOPNEUMONIA [None]
  - CONFUSIONAL STATE [None]
  - DEMYELINATION [None]
  - DRUG TOXICITY [None]
  - GASTROINTESTINAL STOMA NECROSIS [None]
  - GASTROINTESTINAL STROMAL TUMOUR [None]
  - METASTASES TO LIVER [None]
  - RECTAL HAEMORRHAGE [None]
  - RESPIRATORY DISTRESS [None]
  - RESPIRATORY FAILURE [None]
  - REVERSIBLE POSTERIOR LEUKOENCEPHALOPATHY SYNDROME [None]
  - STATUS EPILEPTICUS [None]
